FAERS Safety Report 19658198 (Version 1)
Quarter: 2021Q3

REPORT INFORMATION
  Report Type: Spontaneous
  Country: US (occurrence: US)
  Receive Date: 20210804
  Receipt Date: 20210804
  Transmission Date: 20211014
  Serious: No
  Sender: FDA-Public Use
  Company Number: US-MYLANLABS-2021M1046006

PATIENT
  Sex: Female
  Weight: 86 kg

DRUGS (1)
  1. CLONIDINE TRANSDERMAL SYSTEM [Suspect]
     Active Substance: CLONIDINE
     Indication: HEART RATE ABNORMAL
     Dosage: ONCE WEEKLY
     Route: 062

REACTIONS (1)
  - Drug ineffective [Not Recovered/Not Resolved]
